FAERS Safety Report 10581786 (Version 3)
Quarter: 2015Q2

REPORT INFORMATION
  Report Type: Report from Study
  Country: US (occurrence: US)
  Receive Date: 20141113
  Receipt Date: 20150505
  Transmission Date: 20150821
  Serious: Yes (Hospitalization)
  Sender: FDA-Public Use
  Company Number: US-ACTELION-A-US2014-107769

PATIENT
  Age: 54 Year
  Sex: Male

DRUGS (5)
  1. TRACLEER [Suspect]
     Active Substance: BOSENTAN\BOSENTAN MONOHYDRATE
     Indication: PULMONARY HYPERTENSION
     Dosage: UNK
     Route: 048
     Dates: start: 20130226
  2. SOTALOL HCL [Concomitant]
     Active Substance: SOTALOL
     Dosage: 80 MG, 1 TAB BID
     Route: 048
  3. COUMADIN [Concomitant]
     Active Substance: WARFARIN SODIUM
     Dosage: 6 MG, 1 PO Q NIGHT ALTERNATE WITH 1.5 TAB
     Route: 048
  4. TRAMADOL AND ACETAMINOPHEN [Concomitant]
     Active Substance: ACETAMINOPHEN\TRAMADOL HYDROCHLORIDE
     Dosage: 37-325 MG, 1 PO TID
     Route: 048
  5. TYLENOL WITH CODEINE NO.3 [Concomitant]
     Active Substance: ACETAMINOPHEN\CODEINE PHOSPHATE
     Dosage: 300-30 MG, 1 TABLET Q8 HRS PRN PAIN
     Route: 048

REACTIONS (9)
  - Atrial fibrillation [Unknown]
  - Dyspnoea exertional [Unknown]
  - Fatigue [Unknown]
  - Liver function test abnormal [Unknown]
  - Blood bilirubin abnormal [Unknown]
  - Asthenia [Unknown]
  - Hyperbilirubinaemia [Unknown]
  - Bilirubin conjugated abnormal [Unknown]
  - Sickle cell anaemia with crisis [Recovered/Resolved]

NARRATIVE: CASE EVENT DATE: 20141028
